FAERS Safety Report 4763932-0 (Version None)
Quarter: 2005Q3

REPORT INFORMATION
  Report Type: 
  Country: None (occurrence: None)
  Receive Date: 20050906
  Receipt Date: 20050822
  Transmission Date: 20060218
  Serious: Yes (Other)
  Sender: FDA-Public Use
  Company Number: S05-USA-04098-01

PATIENT
  Age: 43 Year
  Sex: Male

DRUGS (8)
  1. LEXAPRO [Suspect]
     Indication: PAIN
     Dosage: 20 MG QD PO
     Route: 048
     Dates: start: 20050101, end: 20050101
  2. LEXAPRO [Suspect]
     Indication: PAIN
     Dosage: 10 MG QD PO
     Route: 048
     Dates: start: 20050101, end: 20050101
  3. MORPHINE SULFATE [Concomitant]
  4. CLONIDINE [Concomitant]
  5. XANAX [Concomitant]
  6. NEXIUM [Concomitant]
  7. CANNABIS (CANNABIS) [Concomitant]
  8. PEGINTERFERON ALFA-2B [Concomitant]

REACTIONS (12)
  - ABNORMAL DREAMS [None]
  - ASCITES [None]
  - CEREBROVASCULAR ACCIDENT [None]
  - CONVULSION [None]
  - FALL [None]
  - FOOT FRACTURE [None]
  - HEPATITIS [None]
  - NIGHTMARE [None]
  - OEDEMA PERIPHERAL [None]
  - RENAL DISORDER [None]
  - SLEEP WALKING [None]
  - WEIGHT INCREASED [None]
